FAERS Safety Report 10497508 (Version 1)
Quarter: 2014Q4

REPORT INFORMATION
  Report Type: Spontaneous
  Country: PL (occurrence: None)
  Receive Date: 20141002
  Receipt Date: 20141002
  Transmission Date: 20150528
  Serious: Yes (Hospitalization)
  Sender: FDA-Public Use
  Company Number: BD-2014-0096

PATIENT
  Age: 33 Year
  Sex: Male

DRUGS (4)
  1. THEOPHYLLINE (THEOPHYLLINE) [Suspect]
     Active Substance: THEOPHYLLINE ANHYDROUS
  2. METOCLOPRAMIDE (METOCLOPRAMIDE) UNKNOWN [Suspect]
     Active Substance: METOCLOPRAMIDE
     Indication: GASTROINTESTINAL DISORDER
     Route: 051
  3. MYCOPHENOLATE MOFETIL (MYCOPHENOLATE MOFETIL) [Concomitant]
     Active Substance: MYCOPHENOLATE MOFETIL
  4. TACROLIMUS (TACROLIMUS) [Concomitant]
     Active Substance: TACROLIMUS

REACTIONS (2)
  - Generalised tonic-clonic seizure [None]
  - Drug interaction [None]
